FAERS Safety Report 6236370-1 (Version None)
Quarter: 2009Q2

REPORT INFORMATION
  Report Type: 
  Country: None (occurrence: None)
  Receive Date: 20090619
  Receipt Date: 20090610
  Transmission Date: 20091009
  Serious: Yes (Hospitalization, Other)
  Sender: FDA-Public Use
  Company Number: FR-JNJFOC-20090603989

PATIENT
  Age: 58 Year
  Sex: Female

DRUGS (9)
  1. CAELYX [Suspect]
     Route: 042
  2. CAELYX [Suspect]
     Indication: T-CELL LYMPHOMA
     Route: 042
  3. NOXAFIL [Suspect]
     Indication: DRUG USE FOR UNKNOWN INDICATION
     Route: 048
  4. NEORAL [Concomitant]
  5. VALACYCLOVIR HCL [Concomitant]
  6. DIFFU K [Concomitant]
  7. NEXIUM [Concomitant]
  8. SPECIAFOLDINE [Concomitant]
  9. MAGNE- B6 [Concomitant]

REACTIONS (6)
  - ATRIAL FIBRILLATION [None]
  - CARDIAC FAILURE [None]
  - CARDIOTOXICITY [None]
  - CONGESTIVE CARDIOMYOPATHY [None]
  - NON-OBSTRUCTIVE CARDIOMYOPATHY [None]
  - PULMONARY OEDEMA [None]
